FAERS Safety Report 9039386 (Version 1)
Quarter: 2013Q1

REPORT INFORMATION
  Report Type: Report from Study
  Country: US (occurrence: US)
  Receive Date: 20130129
  Receipt Date: 20130129
  Transmission Date: 20140127
  Serious: No
  Sender: FDA-Public Use
  Company Number: US-ABBOTT-12P-163-0932841-00

PATIENT
  Age: 26 Year
  Sex: Female

DRUGS (10)
  1. HUMIRA 40 MG/0.8 ML PEN [Suspect]
     Indication: BEHCET^S SYNDROME
     Dates: start: 20110921
  2. NEXIUM [Concomitant]
     Indication: PROPHYLAXIS AGAINST GASTROINTESTINAL ULCER
  3. METOPROLOL XL [Concomitant]
     Indication: TACHYCARDIA
  4. CHLORTHALIDONE [Concomitant]
     Indication: OEDEMA PERIPHERAL
     Dosage: 50MG; 0.5 TABLET DAILY
  5. SPIRONOLACTONE [Concomitant]
     Indication: HORMONE LEVEL ABNORMAL
  6. FISH OIL [Concomitant]
     Indication: MEDICAL DIET
  7. CALCIUM [Concomitant]
     Indication: VITAMIN SUPPLEMENTATION
  8. VITAMIN B3 [Concomitant]
     Indication: VITAMIN SUPPLEMENTATION
  9. FOLIC ACID [Concomitant]
     Indication: VITAMIN SUPPLEMENTATION
  10. MULTIVITAMIN [Concomitant]
     Indication: VITAMIN SUPPLEMENTATION

REACTIONS (4)
  - Type 2 diabetes mellitus [Unknown]
  - Injection site oedema [Unknown]
  - Injection site erythema [Unknown]
  - Lymphadenopathy [Unknown]
